FAERS Safety Report 23779150 (Version 2)
Quarter: 2024Q2

REPORT INFORMATION
  Report Type: Spontaneous
  Country: CH (occurrence: CH)
  Receive Date: 20240424
  Receipt Date: 20240617
  Transmission Date: 20240716
  Serious: Yes (Disabling, Other)
  Sender: FDA-Public Use
  Company Number: CH-JNJFOC-20240457880

PATIENT
  Age: 38 Year
  Sex: Female

DRUGS (9)
  1. SPRAVATO [Suspect]
     Active Substance: ESKETAMINE
     Indication: Depression
     Dosage: FIRST 2 SESSIONS 56 MG
     Dates: start: 20240108
  2. SPRAVATO [Suspect]
     Active Substance: ESKETAMINE
     Dosage: 19 SESSIONS SO FAR (STILL RUNNING)
     Dates: start: 2024
  3. TIZANIDINE [Concomitant]
     Active Substance: TIZANIDINE
  4. LISDEXAMFETAMINE DIMESYLATE [Concomitant]
     Active Substance: LISDEXAMFETAMINE DIMESYLATE
     Indication: Attention deficit hyperactivity disorder
  5. REMIFENTANIL HYDROCHLORIDE [Concomitant]
     Active Substance: REMIFENTANIL HYDROCHLORIDE
     Indication: Sleep disorder
  6. ESCITALOPRAM [Concomitant]
     Active Substance: ESCITALOPRAM OXALATE
     Indication: Depression
  7. MELATONIN [Concomitant]
     Active Substance: MELATONIN
     Indication: Sleep disorder
  8. AMITRIPTYLINE [Concomitant]
     Active Substance: AMITRIPTYLINE
     Indication: Depression
  9. TRIPTY [Concomitant]
     Indication: Sleep disorder

REACTIONS (1)
  - Uterine prolapse [Not Recovered/Not Resolved]

NARRATIVE: CASE EVENT DATE: 20240401
